FAERS Safety Report 4687542-9 (Version None)
Quarter: 2005Q2

REPORT INFORMATION
  Report Type: 
  Country: None (occurrence: None)
  Receive Date: 20050610
  Receipt Date: 20050601
  Transmission Date: 20051028
  Serious: Yes (Death)
  Sender: FDA-Public Use
  Company Number: US-AMGEN-US137002

PATIENT
  Age: 83 Year
  Sex: Female

DRUGS (6)
  1. PROCRIT [Suspect]
     Indication: DIALYSIS
     Route: 058
  2. INSULIN [Concomitant]
  3. SYNTHROID [Concomitant]
  4. ZOCOR [Concomitant]
  5. PREVACID [Concomitant]
  6. AVAPRO [Concomitant]

REACTIONS (1)
  - DEATH [None]
